FAERS Safety Report 17145501 (Version 1)
Quarter: 2019Q4

REPORT INFORMATION
  Report Type: Spontaneous
  Country: NL (occurrence: NL)
  Receive Date: 20191212
  Receipt Date: 20191212
  Transmission Date: 20200122
  Serious: Yes (Other)
  Sender: FDA-Public Use
  Company Number: NL-TEVA-2019-NL-1148862

PATIENT
  Sex: Female

DRUGS (1)
  1. BOSENTAN TEVA TABLET FILMOMHULD 125 MG (60ST) [Suspect]
     Active Substance: BOSENTAN
     Indication: SKIN ULCER
     Dosage: 250 MILLIGRAM DAILY; CURRENT PRESCRIPTION PERIOD: 02-SEP-2019 TO 31-AUG-2020
     Route: 048

REACTIONS (4)
  - Nausea [Unknown]
  - Pruritus [Unknown]
  - Haematochezia [Unknown]
  - Vomiting [Unknown]
